FAERS Safety Report 9557785 (Version 1)
Quarter: 2013Q3

REPORT INFORMATION
  Report Type: Spontaneous
  Country: JP (occurrence: None)
  Receive Date: 20130912
  Receipt Date: 20130912
  Transmission Date: 20140515
  Serious: No
  Sender: FDA-Public Use
  Company Number: 2013037821

PATIENT
  Age: 17 Year
  Sex: Female

DRUGS (2)
  1. SANGLOPOR [Suspect]
     Indication: ENCEPHALITIS AUTOIMMUNE
  2. STEROID ANTIBACTERIALS (STEROID BACTERIALS) [Concomitant]

REACTIONS (2)
  - Abortion induced [None]
  - Exposure during pregnancy [None]
